FAERS Safety Report 9613787 (Version 1)
Quarter: 2013Q4

REPORT INFORMATION
  Report Type: Spontaneous
  Country: IT (occurrence: IT)
  Receive Date: 20131010
  Receipt Date: 20131010
  Transmission Date: 20140711
  Serious: Yes (Other)
  Sender: FDA-Public Use
  Company Number: PHHY2013IT111444

PATIENT
  Age: 47 Year
  Sex: Male

DRUGS (4)
  1. LORAZEPAM [Suspect]
     Indication: DRUG ABUSE
     Dosage: 40 MG, QD
     Route: 048
     Dates: start: 20130925, end: 20130925
  2. VATRAN [Suspect]
     Indication: DRUG ABUSE
     Dosage: 50 MG, QD
     Route: 048
     Dates: start: 20130925, end: 20130925
  3. TRITTICO [Suspect]
     Indication: DRUG ABUSE
     Dosage: 25 MG/ML, QD
     Route: 048
     Dates: start: 20130925, end: 20130925
  4. TRITTICO [Suspect]
     Dosage: 750 MG, UNK
     Route: 048
     Dates: start: 20130925, end: 20130925

REACTIONS (2)
  - Sopor [Recovering/Resolving]
  - Bradyphrenia [Recovering/Resolving]
